FAERS Safety Report 9630803 (Version 1)
Quarter: 2013Q4

REPORT INFORMATION
  Report Type: Spontaneous
  Country: US (occurrence: None)
  Receive Date: 20131015
  Receipt Date: 20131015
  Transmission Date: 20140711
  Serious: Yes (Disabling, Other)
  Sender: FDA-Public Use
  Company Number: 1310-1271

PATIENT
  Age: 80 Year
  Sex: Male

DRUGS (1)
  1. EYELEA [Suspect]
     Indication: AGE-RELATED MACULAR DEGENERATION
     Dosage: EVERY 4 TO 6 WEEKS AS NEEDED, INTRAVITREAL
     Dates: start: 20120921

REACTIONS (2)
  - Eye inflammation [None]
  - Visual acuity reduced [None]
